FAERS Safety Report 21753109 (Version 2)
Quarter: 2023Q1

REPORT INFORMATION
  Report Type: Spontaneous
  Country: US (occurrence: US)
  Receive Date: 20221220
  Receipt Date: 20230313
  Transmission Date: 20230418
  Serious: No
  Sender: FDA-Public Use
  Company Number: US-LUPIN PHARMACEUTICALS INC.-2022-14439

PATIENT

DRUGS (2)
  1. ALBUTEROL SULFATE [Suspect]
     Active Substance: ALBUTEROL SULFATE
     Indication: Asthma
     Dosage: 2 DOSAGE FORM, 2 PUFFS EVERY 4 HOURS
     Dates: start: 20221115
  2. ALBUTEROL SULFATE [Suspect]
     Active Substance: ALBUTEROL SULFATE
     Indication: Sinusitis

REACTIONS (4)
  - Wrong technique in product usage process [Unknown]
  - Wrong technique in device usage process [Unknown]
  - Drug dose omission by device [Unknown]
  - Off label use [Unknown]
